FAERS Safety Report 25545164 (Version 1)
Quarter: 2025Q3

REPORT INFORMATION
  Report Type: Other
  Country: EU (occurrence: EU)
  Receive Date: 20250711
  Receipt Date: 20250711
  Transmission Date: 20251020
  Serious: Yes (Death, Hospitalization, Other)
  Sender: AIR PRODUCTS
  Company Number: EU-Air Products and Chemicals-2180354

PATIENT
  Age: 72 Year
  Sex: Male

DRUGS (1)
  1. OXYGEN [Suspect]
     Active Substance: OXYGEN

REACTIONS (7)
  - Agitation [Fatal]
  - Cardiac failure [Fatal]
  - Urinary tract infection [Fatal]
  - Respiratory tract infection [Fatal]
  - Hepatopulmonary syndrome [Fatal]
  - Transitional cell carcinoma [Fatal]
  - Oxygen saturation decreased [Fatal]
